FAERS Safety Report 10074435 (Version 1)
Quarter: 2014Q2

REPORT INFORMATION
  Report Type: Spontaneous
  Country: US (occurrence: US)
  Receive Date: 20140411
  Receipt Date: 20140411
  Transmission Date: 20141212
  Serious: No
  Sender: FDA-Public Use
  Company Number: US-SANOFI-AVENTIS-2013SA084960

PATIENT
  Sex: Female

DRUGS (2)
  1. ALLEGRA-D, 12 HR [Suspect]
     Route: 065
  2. GUANFACINE [Concomitant]

REACTIONS (2)
  - Medication residue present [Unknown]
  - Off label use [Unknown]
